FAERS Safety Report 20113838 (Version 2)
Quarter: 2022Q1

REPORT INFORMATION
  Report Type: Report from Study
  Country: US (occurrence: US)
  Receive Date: 20211125
  Receipt Date: 20220201
  Transmission Date: 20220423
  Serious: Yes (Hospitalization)
  Sender: FDA-Public Use
  Company Number: US-SANOFI-00322018

PATIENT
  Age: 67 Year
  Sex: Male

DRUGS (4)
  1. DUPILUMAB [Suspect]
     Active Substance: DUPILUMAB
     Indication: Dermatitis atopic
     Dosage: 600 MG
     Route: 058
     Dates: start: 20201005
  2. DUPILUMAB [Suspect]
     Active Substance: DUPILUMAB
     Dosage: 300 MG, QOW
     Route: 058
  3. DUPILUMAB [Suspect]
     Active Substance: DUPILUMAB
     Dosage: 300 MG, QOW
     Route: 058
     Dates: start: 20210217
  4. FONDAPARINUX [Concomitant]
     Active Substance: FONDAPARINUX
     Dosage: UNK
     Dates: start: 202102

REACTIONS (7)
  - Urinary tract infection [Recovering/Resolving]
  - Hypokinesia [Unknown]
  - Fatigue [Unknown]
  - Herpes zoster [Recovering/Resolving]
  - Paraesthesia [Unknown]
  - Muscular weakness [Unknown]
  - Adverse event [Unknown]

NARRATIVE: CASE EVENT DATE: 20211122
